FAERS Safety Report 22361512 (Version 1)
Quarter: 2023Q2

REPORT INFORMATION
  Report Type: Spontaneous
  Country: US (occurrence: None)
  Receive Date: 20230524
  Receipt Date: 20230524
  Transmission Date: 20230722
  Serious: Yes (Disabling)
  Sender: FDA-Public Use
  Company Number: None

PATIENT
  Age: 68 Year
  Sex: Male
  Weight: 61.2 kg

DRUGS (5)
  1. XIAFLEX [Suspect]
     Active Substance: COLLAGENASE CLOSTRIDIUM HISTOLYTICUM
     Indication: Peyronie^s disease
     Dates: start: 20230103, end: 20230404
  2. LOSARTAN [Concomitant]
     Active Substance: LOSARTAN
  3. SIMVASTATIN [Concomitant]
     Active Substance: SIMVASTATIN
  4. SKYRIZI [Concomitant]
     Active Substance: RISANKIZUMAB-RZAA
  5. VITAMIN B [Concomitant]
     Active Substance: VITAMIN B

REACTIONS (1)
  - Scar [None]

NARRATIVE: CASE EVENT DATE: 20230404
